FAERS Safety Report 19237662 (Version 2)
Quarter: 2021Q2

REPORT INFORMATION
  Report Type: Spontaneous
  Country: FI (occurrence: FI)
  Receive Date: 20210510
  Receipt Date: 20210614
  Transmission Date: 20210717
  Serious: Yes (Other)
  Sender: FDA-Public Use
  Company Number: NVSC2021FI089302

PATIENT
  Age: 57 Year
  Sex: Female

DRUGS (4)
  1. DICLOABAK [Suspect]
     Active Substance: DICLOFENAC SODIUM
     Indication: MACULAR OEDEMA
     Dosage: 3 DRP, QD (1 DROP, TID IN RIGHT EYE)
     Route: 047
     Dates: start: 20210317, end: 20210329
  2. ARTELAC [Concomitant]
     Indication: EYE LUBRICATION THERAPY
     Dosage: UNK
     Route: 065
  3. NEVANAC [Suspect]
     Active Substance: NEPAFENAC
     Indication: MACULAR OEDEMA
     Dosage: 1 DF, QD
     Route: 065
  4. THEALOZ DUO [Concomitant]
     Active Substance: HYALURONATE SODIUM\TREHALOSE
     Indication: EYE LUBRICATION THERAPY
     Dosage: UNK
     Route: 065

REACTIONS (15)
  - Myalgia [Not Recovered/Not Resolved]
  - Dyspepsia [Not Recovered/Not Resolved]
  - Choking sensation [Not Recovered/Not Resolved]
  - Nasal dryness [Not Recovered/Not Resolved]
  - Nausea [Not Recovered/Not Resolved]
  - Coordination abnormal [Not Recovered/Not Resolved]
  - Dry throat [Not Recovered/Not Resolved]
  - Asthenia [Not Recovered/Not Resolved]
  - Hypoaesthesia [Unknown]
  - Dry eye [Not Recovered/Not Resolved]
  - Musculoskeletal stiffness [Not Recovered/Not Resolved]
  - Gastric disorder [Not Recovered/Not Resolved]
  - Off label use [Unknown]
  - Thirst [Recovered/Resolved]
  - Dizziness [Not Recovered/Not Resolved]
